FAERS Safety Report 4388943-9 (Version None)
Quarter: 2004Q3

REPORT INFORMATION
  Report Type: 
  Country: None (occurrence: None)
  Receive Date: 20040702
  Receipt Date: 20040622
  Transmission Date: 20050211
  Serious: Yes (Death)
  Sender: FDA-Public Use
  Company Number: ZA-BRISTOL-MYERS SQUIBB COMPANY-12627816

PATIENT
  Age: 44 Year
  Sex: Male

DRUGS (3)
  1. EFAVIRENZ CAPS 200 MG [Suspect]
     Indication: HIV INFECTION
     Route: 048
     Dates: start: 20031124
  2. STAVUDINE [Suspect]
     Indication: HIV INFECTION
     Dates: start: 20031124
  3. LAMIVUDINE [Suspect]
     Indication: HIV INFECTION
     Dates: start: 20031124

REACTIONS (3)
  - COMPLETED SUICIDE [None]
  - HAEMOGLOBIN DECREASED [None]
  - NEUROPATHY PERIPHERAL [None]
